FAERS Safety Report 4397061-5 (Version None)
Quarter: 2004Q3

REPORT INFORMATION
  Report Type: 
  Country: None (occurrence: None)
  Receive Date: 20040714
  Receipt Date: 20040707
  Transmission Date: 20050211
  Serious: Yes (Other)
  Sender: FDA-Public Use
  Company Number: PHEH2004US07277

PATIENT
  Sex: Female

DRUGS (1)
  1. TEGRETOL-XR [Suspect]
     Indication: BRAIN NEOPLASM BENIGN
     Dosage: 200 MG, BID
     Route: 048
     Dates: start: 20020101

REACTIONS (1)
  - DEPRESSION [None]
